FAERS Safety Report 5943396-1 (Version None)
Quarter: 2008Q4

REPORT INFORMATION
  Report Type: 
  Country: None (occurrence: None)
  Receive Date: 20081105
  Receipt Date: 20081105
  Transmission Date: 20090506
  Serious: Yes (Other)
  Sender: FDA-Public Use
  Company Number: None

PATIENT
  Age: 17 Year
  Sex: Male
  Weight: 40.3701 kg

DRUGS (2)
  1. LAMOTRIGINE [Suspect]
     Indication: CONVULSION
     Dosage: 200 MG 2X/DAY OTHER
     Route: 050
     Dates: start: 20080905, end: 20081015
  2. LAMOTRIGINE [Suspect]
     Indication: CONVULSION
     Dosage: 75 MG 2X/DAY OTHER
     Route: 050
     Dates: start: 20080905, end: 20081015

REACTIONS (2)
  - CONDITION AGGRAVATED [None]
  - CONVULSION [None]
